FAERS Safety Report 7708684-7 (Version None)
Quarter: 2011Q3

REPORT INFORMATION
  Report Type: 
  Country: None (occurrence: None)
  Receive Date: 20110819
  Receipt Date: 20110805
  Transmission Date: 20111222
  Serious: Yes (Hospitalization, Other)
  Sender: FDA-Public Use
  Company Number: EU-2011-10102

PATIENT
  Age: 56 Year
  Sex: Female

DRUGS (2)
  1. SAMSCA [Suspect]
     Indication: HYPONATRAEMIA
     Dosage: 15 MG MILLIGRAM(S), DAILY DOSE, ORAL
     Route: 048
     Dates: start: 20110613, end: 20110613
  2. CORTONE (CORTISONE ACETATE) [Concomitant]

REACTIONS (6)
  - COMA [None]
  - CONFUSIONAL STATE [None]
  - HYPONATRAEMIA [None]
  - GENERAL PHYSICAL HEALTH DETERIORATION [None]
  - DRUG INEFFECTIVE [None]
  - CONVULSION [None]
